FAERS Safety Report 8813259 (Version 1)
Quarter: 2012Q4

REPORT INFORMATION
  Report Type: 
  Country: US (occurrence: US)
  Receive Date: 20120927
  Receipt Date: 20120927
  Transmission Date: 20130627
  Serious: No
  Sender: FDA-Public Use
  Company Number: US-AMGEN-USASP2012044470

PATIENT
  Sex: Female

DRUGS (5)
  1. PROLIA [Suspect]
     Indication: OSTEOPOROSIS POSTMENOPAUSAL
     Dosage: UNK
     Route: 058
     Dates: end: 201206
  2. CALCIUM [Concomitant]
     Dosage: UNK
  3. VITAMIN D /00107901/ [Concomitant]
     Dosage: UNK
  4. PENICILLIN                         /00000901/ [Concomitant]
     Dosage: UNK
  5. ANTIHYPERTENSIVES [Concomitant]
     Indication: HYPERTENSION
     Dosage: UNK

REACTIONS (9)
  - Labyrinthitis [Unknown]
  - Pain in jaw [Not Recovered/Not Resolved]
  - Toothache [Recovered/Resolved]
  - Asthma [Unknown]
  - Throat tightness [Unknown]
  - Sinus congestion [Not Recovered/Not Resolved]
  - Pain [Recovered/Resolved]
  - Hyperaesthesia [Recovered/Resolved]
  - Upper respiratory tract infection [Not Recovered/Not Resolved]
